FAERS Safety Report 15569200 (Version 2)
Quarter: 2018Q4

REPORT INFORMATION
  Report Type: Report from Study
  Country: CA (occurrence: CA)
  Receive Date: 20181031
  Receipt Date: 20181127
  Transmission Date: 20190205
  Serious: Yes (Hospitalization, Other)
  Sender: FDA-Public Use
  Company Number: CA-TAKEDA-2018TUS031182

PATIENT
  Age: 48 Year
  Sex: Female
  Weight: 175.7 kg

DRUGS (7)
  1. IMURAN [Concomitant]
     Active Substance: AZATHIOPRINE
     Dosage: 150 MG, QD
     Dates: start: 201401
  2. VEDOLIZUMAB [Suspect]
     Active Substance: VEDOLIZUMAB
     Dosage: 300 MG, UNK
     Route: 042
  3. WARFARIN [Concomitant]
     Active Substance: WARFARIN
     Indication: THROMBOSIS
     Dosage: UNK
     Dates: start: 2013
  4. COUMADIN [Concomitant]
     Active Substance: WARFARIN SODIUM
     Dosage: 5 MG, QD
     Route: 048
     Dates: start: 201305
  5. EFFEXOR [Concomitant]
     Active Substance: VENLAFAXINE HYDROCHLORIDE
     Indication: DEPRESSION
     Dosage: UNK
     Dates: start: 2013
  6. IMURAN [Concomitant]
     Active Substance: AZATHIOPRINE
     Dosage: 150 MG, QD
     Dates: start: 201505
  7. VEDOLIZUMAB [Suspect]
     Active Substance: VEDOLIZUMAB
     Indication: CROHN^S DISEASE
     Dosage: 300 MG, UNK
     Route: 042
     Dates: start: 20170816

REACTIONS (3)
  - Type 2 diabetes mellitus [Recovered/Resolved]
  - Bartholin^s cyst [Recovered/Resolved]
  - Weight increased [Unknown]

NARRATIVE: CASE EVENT DATE: 2018
